FAERS Safety Report 19898671 (Version 1)
Quarter: 2021Q3

REPORT INFORMATION
  Report Type: Spontaneous
  Country: US (occurrence: US)
  Receive Date: 20210929
  Receipt Date: 20210929
  Transmission Date: 20211014
  Serious: No
  Sender: FDA-Public Use
  Company Number: US-PFIZER INC-2021509609

PATIENT
  Age: 75 Year
  Sex: Male
  Weight: 102.06 kg

DRUGS (3)
  1. HYDROCORTISONE. [Concomitant]
     Active Substance: HYDROCORTISONE
     Indication: HORMONE REPLACEMENT THERAPY
     Dosage: 5 MG, 2X/DAY (ONE IN THE MORNING ONE AT NIGHT)
  2. ANDROGEL [Concomitant]
     Active Substance: TESTOSTERONE
     Indication: HORMONE REPLACEMENT THERAPY
     Dosage: 1.62% TOPICAL GEL, ONE SQUIRT PER DAY ON EACH SHOULDER
  3. GENOTROPIN [Suspect]
     Active Substance: SOMATROPIN
     Indication: GROWTH HORMONE DEFICIENCY
     Dosage: 0.4 MG FOUR TIMES A WEEK
     Route: 058

REACTIONS (2)
  - Device leakage [Unknown]
  - Drug dose omission by device [Unknown]
